FAERS Safety Report 21196957 (Version 2)
Quarter: 2023Q1

REPORT INFORMATION
  Report Type: Spontaneous
  Country: US (occurrence: US)
  Receive Date: 20220810
  Receipt Date: 20230203
  Transmission Date: 20230418
  Serious: No
  Sender: FDA-Public Use
  Company Number: US-BIOGEN-2022BI01139192

PATIENT
  Sex: Male

DRUGS (1)
  1. VUMERITY [Suspect]
     Active Substance: DIROXIMEL FUMARATE
     Indication: Multiple sclerosis
     Route: 050

REACTIONS (7)
  - Thrombosis [Unknown]
  - Hemiparaesthesia [Unknown]
  - Post procedural complication [Unknown]
  - Dysphemia [Unknown]
  - Balance disorder [Unknown]
  - Muscle spasms [Unknown]
  - Headache [Unknown]
